FAERS Safety Report 7518265-6 (Version None)
Quarter: 2011Q2

REPORT INFORMATION
  Report Type: 
  Country: None (occurrence: None)
  Receive Date: 20110601
  Receipt Date: 20110601
  Transmission Date: 20111010
  Serious: No
  Sender: FDA-Public Use
  Company Number: None

PATIENT
  Age: 82 Year
  Sex: Female

DRUGS (2)
  1. BONIVA [Suspect]
     Dosage: 1 MONTHLY
     Dates: start: 20110101
  2. BONIVA [Suspect]
     Dosage: 1 MONTHLY
     Dates: start: 20110201

REACTIONS (2)
  - DRUG INTOLERANCE [None]
  - BONE PAIN [None]
